FAERS Safety Report 7240325-8 (Version None)
Quarter: 2011Q1

REPORT INFORMATION
  Report Type: 
  Country: None (occurrence: None)
  Receive Date: 20110113
  Receipt Date: 19980403
  Transmission Date: 20110831
  Serious: Yes (Death, Hospitalization)
  Sender: FDA-Public Use
  Company Number: LEO-2011-00036

PATIENT
  Age: 86 Year
  Sex: Female

DRUGS (2)
  1. INNOHEP [Suspect]
     Indication: DEEP VEIN THROMBOSIS
     Dosage: 8000 IU (8000 IU, SOLUTION FOR INJECTION), SUBCUTANEOUS
     Route: 058
  2. INNOHEP [Suspect]
     Indication: PULMONARY EMBOLISM
     Dosage: 8000 IU (8000 IU, SOLUTION FOR INJECTION), SUBCUTANEOUS
     Route: 058

REACTIONS (3)
  - HAEMATOMA [None]
  - ACTIVATED PARTIAL THROMBOPLASTIN TIME PROLONGED [None]
  - COAGULOPATHY [None]
